FAERS Safety Report 23383065 (Version 1)
Quarter: 2024Q1

REPORT INFORMATION
  Report Type: Spontaneous
  Country: US (occurrence: US)
  Receive Date: 20240109
  Receipt Date: 20240109
  Transmission Date: 20240410
  Serious: No
  Sender: FDA-Public Use
  Company Number: US-PFIZER INC-202300454833

PATIENT
  Age: 26 Year
  Sex: Male

DRUGS (1)
  1. XELJANZ [Suspect]
     Active Substance: TOFACITINIB CITRATE
     Dosage: 5 MG, 2X/DAY

REACTIONS (3)
  - Arthralgia [Not Recovered/Not Resolved]
  - Iritis [Not Recovered/Not Resolved]
  - Eyelid function disorder [Not Recovered/Not Resolved]

NARRATIVE: CASE EVENT DATE: 20230905
